FAERS Safety Report 24352258 (Version 1)
Quarter: 2024Q3

REPORT INFORMATION
  Report Type: Spontaneous
  Country: GB (occurrence: GB)
  Receive Date: 20240923
  Receipt Date: 20240923
  Transmission Date: 20241017
  Serious: Yes (Hospitalization, Other)
  Sender: BAUSCH AND LOMB
  Company Number: GB-MLMSERVICE-20240911-PI189777-00217-1

PATIENT
  Age: 77 Year
  Sex: Male

DRUGS (2)
  1. METFORMIN [Suspect]
     Active Substance: METFORMIN HYDROCHLORIDE
     Indication: Type 2 diabetes mellitus
     Route: 065
  2. INSULIN NOS [Concomitant]
     Active Substance: INSULIN NOS
     Indication: Type 2 diabetes mellitus
     Dosage: BASAL-BOLUS

REACTIONS (4)
  - Ketoacidosis [Recovered/Resolved]
  - Hyperlactacidaemia [Recovered/Resolved]
  - Hypoglycaemia [Unknown]
  - Intentional product misuse [Unknown]
